FAERS Safety Report 12107640 (Version 2)
Quarter: 2016Q1

REPORT INFORMATION
  Report Type: Spontaneous
  Country: US (occurrence: US)
  Receive Date: 20160224
  Receipt Date: 20160322
  Transmission Date: 20160526
  Serious: No
  Sender: FDA-Public Use
  Company Number: US-JNJFOC-20160124839

PATIENT
  Age: 76 Year
  Sex: Male
  Weight: 106.6 kg

DRUGS (17)
  1. OCUVITE [Concomitant]
     Active Substance: VITAMINS
     Route: 065
  2. MULTIVITAMINS [Concomitant]
     Active Substance: VITAMINS
     Dosage: DOSE 1300 (UNITS UNSPECIFIED)
     Route: 065
  3. INVOKANA [Suspect]
     Active Substance: CANAGLIFLOZIN
     Indication: TYPE 2 DIABETES MELLITUS
     Route: 048
     Dates: start: 20160208
  4. INVOKANA [Suspect]
     Active Substance: CANAGLIFLOZIN
     Indication: TYPE 2 DIABETES MELLITUS
     Route: 048
     Dates: start: 20151015, end: 201512
  5. ALLOPURINOL. [Concomitant]
     Active Substance: ALLOPURINOL
     Indication: BLOOD URIC ACID
     Route: 065
     Dates: start: 2001
  6. TAMSULOSIN [Concomitant]
     Active Substance: TAMSULOSIN
     Indication: MICTURITION DISORDER
     Dosage: AT NIGHT
     Route: 065
     Dates: start: 2011
  7. METFORMIN [Concomitant]
     Active Substance: METFORMIN HYDROCHLORIDE
     Indication: DIABETES MELLITUS
     Route: 065
     Dates: start: 2001
  8. GLIPIZIDE. [Concomitant]
     Active Substance: GLIPIZIDE
     Indication: DIABETES MELLITUS
     Route: 065
     Dates: start: 2001
  9. CRESTOR [Concomitant]
     Active Substance: ROSUVASTATIN CALCIUM
     Indication: BLOOD CHOLESTEROL INCREASED
     Route: 065
     Dates: start: 2011
  10. PIOGLITAZONE. [Concomitant]
     Active Substance: PIOGLITAZONE
     Dosage: DOSE 30 (UNITS UNSPECIFIED)
     Route: 065
  11. OSTEO BI-FLEX [Concomitant]
     Active Substance: CHONDROITIN SULFATE A\GLUCOSAMINE
     Route: 065
  12. INVOKANA [Suspect]
     Active Substance: CANAGLIFLOZIN
     Indication: TYPE 2 DIABETES MELLITUS
     Route: 048
     Dates: start: 201512, end: 20160127
  13. VITAMINE D [Concomitant]
     Dosage: DOSE 2000 (UNITS UNSPECIFIED)
     Route: 065
  14. SUPER B COMPLEX [Concomitant]
     Active Substance: CYANOCOBALAMIN\DEXPANTHENOL\NIACINAMIDE\PYRIDOXINE HYDROCHLORIDE\RIBOFLAVIN 5^-PHOSPHATE SODIUM\THIAMINE HYDROCHLORIDE\VITAMIN B COMPLEX
     Route: 065
  15. LISINOPRIL. [Concomitant]
     Active Substance: LISINOPRIL
     Route: 065
     Dates: start: 2011
  16. FISH OIL [Concomitant]
     Active Substance: FISH OIL
     Dosage: DOSE 1000 (UNITS UNSPECIFIED)
     Route: 065
  17. VITAMINE C [Concomitant]
     Active Substance: ASCORBIC ACID
     Dosage: DOSE 500 (UNITS UNSPECIFIED)
     Route: 065

REACTIONS (5)
  - Wrong technique in product usage process [Unknown]
  - Inappropriate schedule of drug administration [Recovered/Resolved]
  - Dizziness [Recovering/Resolving]
  - Sinusitis [Unknown]
  - Treatment noncompliance [Unknown]

NARRATIVE: CASE EVENT DATE: 201510
